FAERS Safety Report 4758107-5 (Version None)
Quarter: 2005Q3

REPORT INFORMATION
  Report Type: 
  Country: None (occurrence: None)
  Receive Date: 20050829
  Receipt Date: 20050818
  Transmission Date: 20060218
  Serious: Yes (Other)
  Sender: FDA-Public Use
  Company Number: 2005118531

PATIENT
  Age: 61 Year
  Sex: Female

DRUGS (5)
  1. QUINAPRIL HCL [Suspect]
     Indication: ILL-DEFINED DISORDER
     Dosage: ORAL
     Route: 048
     Dates: start: 20040501
  2. METFORMIN HCL [Concomitant]
  3. DOXAZOSIN MESYLATE (DOXAZOSIN) [Concomitant]
  4. MOBIC [Concomitant]
  5. HYDROCHLOROTHIAZIDE [Concomitant]

REACTIONS (2)
  - BENIGN HEPATIC NEOPLASM [None]
  - HYSTERECTOMY [None]
